FAERS Safety Report 6022638-0 (Version None)
Quarter: 2008Q4

REPORT INFORMATION
  Report Type: 
  Country: None (occurrence: None)
  Receive Date: 20081221
  Receipt Date: 20081221
  Transmission Date: 20090506
  Serious: Yes (Other)
  Sender: FDA-Public Use
  Company Number: None

PATIENT
  Sex: Female
  Weight: 58.0604 kg

DRUGS (1)
  1. DIVIGEL [Suspect]
     Indication: HORMONE REPLACEMENT THERAPY
     Dosage: 1 G DAILY VAG
     Route: 067
     Dates: start: 20081019, end: 20081219

REACTIONS (7)
  - ALOPECIA [None]
  - BLOOD PRESSURE DECREASED [None]
  - BREAST PAIN [None]
  - CHEST PAIN [None]
  - DIZZINESS [None]
  - DYSPNOEA [None]
  - HEADACHE [None]
